FAERS Safety Report 12419329 (Version 1)
Quarter: 2016Q2

REPORT INFORMATION
  Report Type: Spontaneous
  Country: US (occurrence: None)
  Receive Date: 20160527
  Receipt Date: 20160527
  Transmission Date: 20160815
  Serious: Yes (Hospitalization)
  Sender: FDA-Public Use
  Company Number: None

PATIENT
  Age: 60 Year
  Sex: Female

DRUGS (18)
  1. LEXAPRO [Concomitant]
     Active Substance: ESCITALOPRAM OXALATE
  2. BUPROPN HCL [Concomitant]
     Active Substance: BUPROPION HYDROCHLORIDE
  3. ACETAMIN [Concomitant]
     Active Substance: ACETAMINOPHEN
  4. CYCLOBENZAPR [Concomitant]
  5. GABAPENTIN. [Concomitant]
     Active Substance: GABAPENTIN
  6. NYSTATIN CRE [Concomitant]
  7. FUROSEMIDE. [Concomitant]
     Active Substance: FUROSEMIDE
  8. CLONASEPAM [Concomitant]
  9. ADCIRCA [Suspect]
     Active Substance: TADALAFIL
     Indication: PULMONARY ARTERIAL HYPERTENSION
     Dosage: 2-20 MG TAB QD PO
     Route: 048
     Dates: start: 20110811
  10. HYDROXYCHLOR [Concomitant]
     Active Substance: HYDROXYCHLOROQUINE
  11. OXYCODONE [Concomitant]
     Active Substance: OXYCODONE
  12. SENNA [Concomitant]
     Active Substance: SENNA LEAF\SENNOSIDES\SENNOSIDES A AND B
  13. IBUPROFEN. [Concomitant]
     Active Substance: IBUPROFEN
  14. PANTOPRAZOLE [Concomitant]
     Active Substance: PANTOPRAZOLE SODIUM
  15. AVAPRO [Concomitant]
     Active Substance: IRBESARTAN
  16. TRACLEER [Concomitant]
     Active Substance: BOSENTAN
  17. FOLIC ACID. [Concomitant]
     Active Substance: FOLIC ACID
  18. RANITIDINE. [Concomitant]
     Active Substance: RANITIDINE

REACTIONS (1)
  - Cardiac disorder [None]

NARRATIVE: CASE EVENT DATE: 20160522
